FAERS Safety Report 24801494 (Version 2)
Quarter: 2025Q3

REPORT INFORMATION
  Report Type: Spontaneous
  Country: US (occurrence: US)
  Receive Date: 20250102
  Receipt Date: 20250819
  Transmission Date: 20251020
  Serious: No
  Sender: PFIZER
  Company Number: US-PFIZER INC-PV202400169743

PATIENT
  Age: 48 Year
  Sex: Female
  Weight: 83.537 kg

DRUGS (6)
  1. DUAVEE [Interacting]
     Active Substance: BAZEDOXIFENE ACETATE\ESTROGENS, CONJUGATED
     Dosage: 1 DF (0.45MG/20MG), 1X/DAY
     Route: 048
     Dates: start: 20241031
  2. BIJUVA [Interacting]
     Active Substance: ESTRADIOL\PROGESTERONE
  3. GABAPENTIN [Concomitant]
     Active Substance: GABAPENTIN
  4. ATORVASTATIN [Concomitant]
     Active Substance: ATORVASTATIN
  5. OXYCODONE [Concomitant]
     Active Substance: OXYCODONE
  6. MOUNJARO [Concomitant]
     Active Substance: TIRZEPATIDE

REACTIONS (3)
  - Off label use [Unknown]
  - Product use issue [Unknown]
  - Drug interaction [Unknown]
